FAERS Safety Report 4615905-6 (Version None)
Quarter: 2005Q1

REPORT INFORMATION
  Report Type: 
  Country: None (occurrence: None)
  Receive Date: 20050318
  Receipt Date: 20050308
  Transmission Date: 20050727
  Serious: No
  Sender: FDA-Public Use
  Company Number: 2005AP01649

PATIENT
  Sex: Female

DRUGS (6)
  1. LISINOPRIL [Suspect]
     Dosage: 10 MG DAILY PO
     Route: 048
     Dates: end: 20040302
  2. FLUCLOXACILLIN [Suspect]
     Dosage: 4 G DAILY
     Dates: start: 20040228, end: 20040302
  3. PREDNISONE [Concomitant]
  4. MINAX [Concomitant]
  5. GLICLAZIDE [Concomitant]
  6. ASPIRIN [Concomitant]

REACTIONS (1)
  - NEPHRITIS INTERSTITIAL [None]
